FAERS Safety Report 12875739 (Version 1)
Quarter: 2016Q4

REPORT INFORMATION
  Report Type: Spontaneous
  Country: US (occurrence: US)
  Receive Date: 20161024
  Receipt Date: 20161024
  Transmission Date: 20170207
  Serious: No
  Sender: FDA-Public Use
  Company Number: US-ACCORD-040626

PATIENT
  Age: 71 Year
  Sex: Female
  Weight: 52.73 kg

DRUGS (1)
  1. HYDROCHLOROTHIAZIDE. [Suspect]
     Active Substance: HYDROCHLOROTHIAZIDE
     Indication: BLOOD PRESSURE MEASUREMENT
     Dosage: STRENGTH: 12.5 MG
     Route: 048
     Dates: start: 20151228

REACTIONS (2)
  - Chills [Unknown]
  - Pyrexia [Unknown]
